FAERS Safety Report 14060831 (Version 2)
Quarter: 2017Q4

REPORT INFORMATION
  Report Type: Report from Study
  Country: PL (occurrence: PL)
  Receive Date: 20171009
  Receipt Date: 20171229
  Transmission Date: 20180321
  Serious: Yes (Other)
  Sender: FDA-Public Use
  Company Number: PHHO2013PL017658

PATIENT
  Age: 33 Year
  Sex: Female
  Weight: 74 kg

DRUGS (4)
  1. CAPECITABINE. [Suspect]
     Active Substance: CAPECITABINE
     Indication: BREAST CANCER METASTATIC
     Dosage: 2000 MG/M2, CYCLIC
     Route: 048
     Dates: start: 20120405, end: 20130310
  2. CYCLONAMINE [Concomitant]
     Active Substance: ETHAMSYLATE
     Indication: THROMBOCYTOPENIA
     Dosage: 150 UG, Q72H
     Route: 048
     Dates: start: 20130318
  3. TYKERB [Suspect]
     Active Substance: LAPATINIB DITOSYLATE
     Indication: BREAST CANCER METASTATIC
     Dosage: 1250 MG, QD
     Route: 048
     Dates: start: 20120406, end: 20130318
  4. DEXAVEN [Concomitant]
     Active Substance: DEXAMETHASONE
     Indication: THROMBOCYTOPENIA
     Dosage: 4 MG, UNK
     Route: 065
     Dates: start: 20130318, end: 20130513

REACTIONS (1)
  - Thrombocytopenia [Recovered/Resolved]

NARRATIVE: CASE EVENT DATE: 20130326
